FAERS Safety Report 9450658 (Version 2)
Quarter: 2013Q3

REPORT INFORMATION
  Report Type: Spontaneous
  Country: US (occurrence: US)
  Receive Date: 20130809
  Receipt Date: 20130830
  Transmission Date: 20140515
  Serious: No
  Sender: FDA-Public Use
  Company Number: US-BAXTER-2013BAX031047

PATIENT
  Age: 55 Year
  Sex: Female

DRUGS (2)
  1. GAMMAGARD LIQUID [Suspect]
     Indication: PRODUCT USED FOR UNKNOWN INDICATION
     Route: 042
     Dates: start: 20130726, end: 20130726
  2. GAMMAGARD LIQUID [Suspect]
     Route: 042
     Dates: start: 2009

REACTIONS (2)
  - Rash [Recovered/Resolved]
  - Liquid product physical issue [Recovered/Resolved]
